FAERS Safety Report 9258317 (Version 2)
Quarter: 2013Q2

REPORT INFORMATION
  Report Type: Spontaneous
  Country: US (occurrence: US)
  Receive Date: 20130426
  Receipt Date: 20130604
  Transmission Date: 20140414
  Serious: No
  Sender: FDA-Public Use
  Company Number: US-009507513-1304USA004558

PATIENT
  Sex: Female
  Weight: 65.76 kg

DRUGS (14)
  1. CLARITIN [Suspect]
     Indication: SEASONAL ALLERGY
     Dosage: 10 MG, QAM
     Route: 048
     Dates: start: 2000, end: 2010
  2. CLARITIN [Suspect]
     Indication: RHINORRHOEA
     Dosage: 10 MG, QAM
     Route: 048
     Dates: start: 2013
  3. CLARITIN [Suspect]
     Indication: SNEEZING
  4. CLARITIN [Suspect]
     Indication: EYE PRURITUS
  5. CLARITIN [Suspect]
     Indication: THROAT IRRITATION
  6. CLARITIN [Suspect]
     Indication: OCULAR HYPERAEMIA
  7. BENADRYL [Concomitant]
     Indication: HYPERSENSITIVITY
     Dosage: UNK, UNKNOWN
  8. BENADRYL [Concomitant]
     Indication: SEASONAL ALLERGY
  9. TYLENOL [Concomitant]
     Indication: PAIN
     Dosage: UNK, UNKNOWN
  10. VITAMINS (UNSPECIFIED) [Concomitant]
     Indication: ROUTINE HEALTH MAINTENANCE
     Dosage: UNK, UNKNOWN
  11. VITAMIN B (UNSPECIFIED) [Concomitant]
     Indication: ROUTINE HEALTH MAINTENANCE
     Dosage: UNK, UNKNOWN
  12. CALCIUM CITRATE [Concomitant]
     Indication: ROUTINE HEALTH MAINTENANCE
  13. GARLIC [Concomitant]
     Indication: ROUTINE HEALTH MAINTENANCE
     Dosage: UNK, UNKNOWN
  14. APPLE CIDER VINEGAR [Concomitant]
     Indication: ROUTINE HEALTH MAINTENANCE
     Dosage: UNK, UNKNOWN

REACTIONS (2)
  - Palpitations [Not Recovered/Not Resolved]
  - Drug ineffective for unapproved indication [Unknown]
